FAERS Safety Report 10195908 (Version 1)
Quarter: 2014Q2

REPORT INFORMATION
  Report Type: Spontaneous
  Country: US (occurrence: None)
  Receive Date: 20140521
  Receipt Date: 20140521
  Transmission Date: 20141212
  Serious: Yes (Other)
  Sender: FDA-Public Use
  Company Number: BTG00124

PATIENT
  Sex: 0

DRUGS (2)
  1. VORAXAZE [Suspect]
     Indication: TOXICITY TO VARIOUS AGENTS
     Dosage: OVER 5 MINUTES
     Route: 042
  2. METHOTREXATE [Suspect]
     Indication: PRODUCT USED FOR UNKNOWN INDICATION

REACTIONS (2)
  - Haemodialysis [None]
  - Electrolyte imbalance [None]
